FAERS Safety Report 7011477-X (Version None)
Quarter: 2010Q3

REPORT INFORMATION
  Report Type: 
  Country: None (occurrence: None)
  Receive Date: 20100923
  Receipt Date: 20090210
  Transmission Date: 20110219
  Serious: No
  Sender: FDA-Public Use
  Company Number: US-WYE-H08175409

PATIENT
  Age: 35 Year
  Sex: Female
  Weight: 57.2 kg

DRUGS (3)
  1. ADVIL COLD AND SINUS [Suspect]
     Indication: NASOPHARYNGITIS
     Dosage: 1 CAPLET DAILY
     Route: 048
     Dates: start: 20090205, end: 20090209
  2. ADVIL COLD AND SINUS [Suspect]
     Indication: COUGH
  3. ADVIL COLD AND SINUS [Suspect]
     Indication: SINUS HEADACHE

REACTIONS (2)
  - EAR DISCOMFORT [None]
  - HYPOACUSIS [None]
